FAERS Safety Report 9899325 (Version 1)
Quarter: 2014Q1

REPORT INFORMATION
  Report Type: Spontaneous
  Country: NO (occurrence: NO)
  Receive Date: 20140214
  Receipt Date: 20140214
  Transmission Date: 20141002
  Serious: Yes (Other)
  Sender: FDA-Public Use
  Company Number: NO-PFIZER INC-2014043529

PATIENT
  Age: 71 Year
  Sex: Male

DRUGS (1)
  1. PIROXICAM [Suspect]
     Dosage: UNK

REACTIONS (4)
  - Oesophageal ulcer [Recovering/Resolving]
  - Haematemesis [Recovering/Resolving]
  - Vomiting [Recovering/Resolving]
  - Product packaging issue [Unknown]
